FAERS Safety Report 24096268 (Version 2)
Quarter: 2024Q3

REPORT INFORMATION
  Report Type: Report from Study
  Country: MX (occurrence: MX)
  Receive Date: 20240716
  Receipt Date: 20240802
  Transmission Date: 20241016
  Serious: Yes (Hospitalization, Disabling)
  Sender: SANOFI AVENTIS
  Company Number: MX-SANOFI-02129040

PATIENT
  Age: 39 Year
  Sex: Male

DRUGS (1)
  1. ALEMTUZUMAB [Suspect]
     Active Substance: ALEMTUZUMAB
     Indication: Multiple sclerosis
     Dosage: 12 MG, QD
     Route: 042
     Dates: start: 20240624, end: 20240628

REACTIONS (15)
  - Gait disturbance [Unknown]
  - Drug hypersensitivity [Unknown]
  - Rash [Unknown]
  - Dermatosis [Unknown]
  - Bacterial infection [Recovered/Resolved]
  - Oral herpes [Unknown]
  - Mobility decreased [Unknown]
  - Respiratory symptom [Unknown]
  - Malaise [Unknown]
  - Muscular weakness [Unknown]
  - Myalgia [Unknown]
  - Arthralgia [Unknown]
  - Headache [Unknown]
  - Pain [Unknown]
  - Fatigue [Unknown]

NARRATIVE: CASE EVENT DATE: 20240101
